FAERS Safety Report 9752251 (Version 1)
Quarter: 2013Q4

REPORT INFORMATION
  Report Type: Spontaneous
  Country: FR (occurrence: FR)
  Receive Date: 20131213
  Receipt Date: 20131213
  Transmission Date: 20140711
  Serious: Yes (Other)
  Sender: FDA-Public Use
  Company Number: FR-ELI_LILLY_AND_COMPANY-FR201312003312

PATIENT
  Sex: 0

DRUGS (4)
  1. DULOXETINE HYDROCHLORIDE [Suspect]
     Indication: DEPRESSION
     Dosage: 30 MG, QD
     Route: 048
  2. DULOXETINE HYDROCHLORIDE [Suspect]
     Dosage: 60 MG, QD
     Route: 048
  3. ZOLPIDEM [Suspect]
     Indication: PRODUCT USED FOR UNKNOWN INDICATION
     Route: 065
  4. LORMETAZEPAM [Suspect]
     Indication: PRODUCT USED FOR UNKNOWN INDICATION
     Route: 065

REACTIONS (3)
  - Self injurious behaviour [Unknown]
  - Suicidal behaviour [Unknown]
  - Intentional overdose [Unknown]
